FAERS Safety Report 6021522-6 (Version None)
Quarter: 2008Q4

REPORT INFORMATION
  Report Type: 
  Country: None (occurrence: None)
  Receive Date: 20081229
  Receipt Date: 20081218
  Transmission Date: 20090506
  Serious: Yes (Hospitalization, Other)
  Sender: FDA-Public Use
  Company Number: JP-JNJFOC-20080401221

PATIENT
  Sex: Male
  Weight: 56 kg

DRUGS (39)
  1. REMICADE [Suspect]
     Dosage: PATIENT RECEIVED 19 INFLIXIMAB INFUSIONS BETWEEN12-AUG-2004 AND 26-OCT-2007.
     Route: 042
  2. REMICADE [Suspect]
     Route: 042
  3. REMICADE [Suspect]
     Route: 042
  4. REMICADE [Suspect]
     Route: 042
  5. REMICADE [Suspect]
     Route: 042
  6. REMICADE [Suspect]
     Route: 042
  7. REMICADE [Suspect]
     Route: 042
  8. REMICADE [Suspect]
     Route: 042
  9. REMICADE [Suspect]
     Route: 042
  10. REMICADE [Suspect]
     Route: 042
  11. REMICADE [Suspect]
     Route: 042
  12. REMICADE [Suspect]
     Route: 042
  13. REMICADE [Suspect]
     Route: 042
  14. REMICADE [Suspect]
     Route: 042
  15. REMICADE [Suspect]
     Route: 042
  16. REMICADE [Suspect]
     Route: 042
  17. REMICADE [Suspect]
     Route: 042
  18. REMICADE [Suspect]
     Route: 042
  19. REMICADE [Suspect]
     Indication: RHEUMATOID ARTHRITIS
     Route: 042
  20. RHEUMATREX [Suspect]
     Route: 048
  21. RHEUMATREX [Suspect]
     Route: 048
  22. RHEUMATREX [Suspect]
     Route: 048
  23. RHEUMATREX [Suspect]
     Route: 048
  24. RHEUMATREX [Suspect]
     Indication: RHEUMATOID ARTHRITIS
     Route: 048
  25. ISCOTIN [Concomitant]
     Indication: ANTIBIOTIC PROPHYLAXIS
     Route: 048
  26. PREDONINE [Concomitant]
     Indication: RHEUMATOID ARTHRITIS
     Route: 048
  27. RIMATIL [Concomitant]
     Indication: RHEUMATOID ARTHRITIS
     Route: 048
  28. AMLODIN [Concomitant]
     Indication: HYPERTENSION
     Route: 048
  29. SUCRALFATE [Concomitant]
     Route: 048
  30. PYDOXAL [Concomitant]
     Route: 048
  31. FOLIAMIN [Concomitant]
     Route: 048
  32. ADRENAL HORMONE PREPERATION [Concomitant]
     Indication: RHEUMATOID ARTHRITIS
  33. MUCOSTA [Concomitant]
     Indication: GASTRITIS
     Route: 048
  34. TAKEPRON [Concomitant]
     Indication: REFLUX OESOPHAGITIS
     Route: 048
  35. PREDONINE [Concomitant]
     Route: 048
  36. FOSMICIN [Concomitant]
     Indication: BRONCHITIS
  37. MAGMITT [Concomitant]
     Indication: CONSTIPATION
     Route: 048
  38. INFREE [Concomitant]
     Indication: RHEUMATOID ARTHRITIS
     Route: 048
  39. PREDNISOLONE [Concomitant]
     Indication: RHEUMATOID ARTHRITIS
     Route: 048

REACTIONS (11)
  - ALOPECIA [None]
  - ARTHRALGIA [None]
  - ASTHENIA [None]
  - CONSTIPATION [None]
  - DIZZINESS [None]
  - HODGKIN'S DISEASE [None]
  - HYPOAESTHESIA [None]
  - HYPOGLYCAEMIA [None]
  - INTERSTITIAL LUNG DISEASE [None]
  - PYREXIA [None]
  - RHEUMATOID ARTHRITIS [None]
